FAERS Safety Report 9846570 (Version 2)
Quarter: 2014Q1

REPORT INFORMATION
  Report Type: Spontaneous
  Country: US (occurrence: US)
  Receive Date: 20140127
  Receipt Date: 20140211
  Transmission Date: 20141002
  Serious: Yes (Hospitalization)
  Sender: FDA-Public Use
  Company Number: US-GLAXOSMITHKLINE-A1057245A

PATIENT
  Age: 55 Year
  Sex: Male

DRUGS (16)
  1. VENTOLIN [Suspect]
     Indication: ASTHMA
     Dosage: 1PUFF FOUR TIMES PER DAY
     Route: 055
     Dates: start: 2012
  2. LIPITOR [Concomitant]
  3. FLOMAX [Concomitant]
  4. GLIPIZIDE [Concomitant]
  5. PROTONIX [Concomitant]
  6. BUMETANIDE [Concomitant]
  7. BACLOFEN [Concomitant]
  8. METFORMIN [Concomitant]
  9. NEURONTIN [Concomitant]
  10. NOVOLOG INSULIN [Concomitant]
  11. LANTUS [Concomitant]
  12. NEUPRO [Concomitant]
  13. ASPIRIN [Concomitant]
  14. MUCINEX [Concomitant]
  15. C-PAP MACHINE [Concomitant]
  16. OXYGEN THERAPY [Concomitant]

REACTIONS (3)
  - Chest discomfort [Recovering/Resolving]
  - Asthma [Recovering/Resolving]
  - Bronchopneumonia [Recovering/Resolving]
